FAERS Safety Report 5302683-0 (Version None)
Quarter: 2007Q2

REPORT INFORMATION
  Report Type: 
  Country: None (occurrence: None)
  Receive Date: 20070419
  Receipt Date: 20070412
  Transmission Date: 20071010
  Serious: Yes (Death)
  Sender: FDA-Public Use
  Company Number: US-GENENTECH-239930

PATIENT
  Age: 37 Year
  Sex: Male

DRUGS (4)
  1. RITUXAN [Suspect]
     Indication: PEMPHIGUS
  2. PREDNISONE TAB [Concomitant]
     Indication: PEMPHIGUS
     Dosage: 10 MG, QD
  3. PREDNISONE TAB [Concomitant]
     Dosage: 20 MG, QD
  4. CYCLOPHOSPHAMIDE [Concomitant]
     Indication: PEMPHIGUS
     Dosage: 2 MG/KG, UNK

REACTIONS (1)
  - PNEUMOCYSTIS JIROVECI PNEUMONIA [None]
